FAERS Safety Report 23146125 (Version 2)
Quarter: 2023Q4

REPORT INFORMATION
  Report Type: Spontaneous
  Country: FR (occurrence: FR)
  Receive Date: 20231104
  Receipt Date: 20231127
  Transmission Date: 20240110
  Serious: Yes (Other)
  Sender: FDA-Public Use
  Company Number: FR-UCBSA-2023051269

PATIENT
  Sex: Female
  Weight: 123 kg

DRUGS (8)
  1. VENLAFAXINE [Suspect]
     Active Substance: VENLAFAXINE HYDROCHLORIDE
     Indication: Cataplexy
     Dosage: UNK (37.5 LP)
     Route: 048
  2. XYREM [Suspect]
     Active Substance: SODIUM OXYBATE
     Indication: Cataplexy
     Dosage: 6 GRAM, ONCE A DAY
     Route: 048
     Dates: start: 20230720, end: 20230916
  3. XYREM [Suspect]
     Active Substance: SODIUM OXYBATE
     Dosage: 9 GRAM, TWO TIMES A DAY (4G50/3G)
     Route: 048
     Dates: start: 20230916, end: 20230918
  4. XYREM [Suspect]
     Active Substance: SODIUM OXYBATE
     Dosage: UNK
     Route: 048
     Dates: start: 20230918, end: 20230920
  5. XYREM [Suspect]
     Active Substance: SODIUM OXYBATE
     Dosage: 7.5 GRAM, TWO TIMES A DAY (3.75G/3G)
     Route: 048
     Dates: start: 20230920, end: 20231011
  6. XYREM [Suspect]
     Active Substance: SODIUM OXYBATE
     Dosage: 3 GRAM, TWO TIMES A DAY
     Route: 048
     Dates: start: 20231011
  7. RITALIN [Concomitant]
     Active Substance: METHYLPHENIDATE HYDROCHLORIDE
     Indication: Cataplexy
     Dosage: 40 MILLIGRAM, TWO TIMES A DAY
     Route: 048
  8. RITALIN [Concomitant]
     Active Substance: METHYLPHENIDATE HYDROCHLORIDE
     Indication: Narcolepsy

REACTIONS (8)
  - Cataplexy [Recovered/Resolved with Sequelae]
  - Confusional state [Recovered/Resolved with Sequelae]
  - Malaise [Recovered/Resolved]
  - Limb discomfort [Recovered/Resolved with Sequelae]
  - Therapy interrupted [Unknown]
  - Sleep disorder [Recovered/Resolved with Sequelae]
  - Vein disorder [Recovered/Resolved with Sequelae]
  - Intentional product misuse [Unknown]

NARRATIVE: CASE EVENT DATE: 20230101
